FAERS Safety Report 9938656 (Version 2)
Quarter: 2014Q1

REPORT INFORMATION
  Report Type: Spontaneous
  Country: ID (occurrence: ID)
  Receive Date: 20140303
  Receipt Date: 20140307
  Transmission Date: 20141002
  Serious: Yes (Hospitalization)
  Sender: FDA-Public Use
  Company Number: ID-JNJFOC-20140216252

PATIENT
  Age: 63 Year
  Sex: Male

DRUGS (2)
  1. XARELTO [Suspect]
     Indication: ANTICOAGULANT THERAPY
     Route: 048
     Dates: start: 20140209, end: 20140210
  2. ADALAT OROS [Concomitant]
     Route: 065

REACTIONS (2)
  - Swelling face [Recovering/Resolving]
  - Obstructive airways disorder [Unknown]
